FAERS Safety Report 10224056 (Version 4)
Quarter: 2014Q3

REPORT INFORMATION
  Report Type: Spontaneous
  Country: BR (occurrence: BR)
  Receive Date: 20140609
  Receipt Date: 20140707
  Transmission Date: 20150326
  Serious: Yes (Other)
  Sender: FDA-Public Use
  Company Number: BR-SA-2014SA040636

PATIENT
  Age: 77 Year
  Sex: Female

DRUGS (14)
  1. DEPURA [Concomitant]
     Active Substance: CHOLECALCIFEROL
     Indication: TYPE 2 DIABETES MELLITUS
     Dosage: 50 DROPS
  2. ACETYLSALICYLIC ACID [Concomitant]
     Active Substance: ASPIRIN
     Indication: CARDIAC DISORDER
  3. DIGESAN [Concomitant]
     Indication: GASTRIC DISORDER
  4. GALVUS [Concomitant]
     Active Substance: VILDAGLIPTIN
     Indication: TYPE 2 DIABETES MELLITUS
  5. SIMVASTATIN. [Concomitant]
     Active Substance: SIMVASTATIN
     Indication: CARDIAC DISORDER
  6. BENERVA [Concomitant]
     Active Substance: THIAMINE
     Indication: TYPE 2 DIABETES MELLITUS
  7. LEXAPRO [Concomitant]
     Active Substance: ESCITALOPRAM OXALATE
     Indication: NERVOUSNESS
  8. PANTOCAL [Concomitant]
     Indication: TYPE 2 DIABETES MELLITUS
  9. LANTUS [Suspect]
     Active Substance: INSULIN GLARGINE
     Indication: TYPE 2 DIABETES MELLITUS
     Dosage: IN MORNING
     Route: 058
     Dates: start: 2010
  10. SIFROL [Concomitant]
     Active Substance: PRAMIPEXOLE
     Indication: NEUROLOGICAL SYMPTOM
  11. ADALAT [Concomitant]
     Active Substance: NIFEDIPINE
     Indication: CARDIAC DISORDER
  12. LYRICA [Concomitant]
     Active Substance: PREGABALIN
     Indication: NEUROLOGICAL SYMPTOM
  13. INSULIN PEN NOS [Concomitant]
     Active Substance: INSULIN NOS
     Indication: DEVICE THERAPY
  14. DIOVAN [Concomitant]
     Active Substance: VALSARTAN
     Indication: BLOOD PRESSURE

REACTIONS (15)
  - Pain in extremity [Recovered/Resolved]
  - Mass [Not Recovered/Not Resolved]
  - Memory impairment [Not Recovered/Not Resolved]
  - Parkinson^s disease [Unknown]
  - Fall [Unknown]
  - Abdominal pain [Recovered/Resolved]
  - Blood glucose increased [Recovering/Resolving]
  - Dizziness [Not Recovered/Not Resolved]
  - Tremor [Recovering/Resolving]
  - Pain [Not Recovered/Not Resolved]
  - Tremor [Unknown]
  - Varicose vein [Not Recovered/Not Resolved]
  - Blood glucose abnormal [Unknown]
  - Fractured coccyx [Recovered/Resolved]
  - Peripheral swelling [Recovered/Resolved]

NARRATIVE: CASE EVENT DATE: 2011
